FAERS Safety Report 22191884 (Version 1)
Quarter: 2023Q2

REPORT INFORMATION
  Report Type: Spontaneous
  Country: US (occurrence: None)
  Receive Date: 20230407
  Receipt Date: 20230407
  Transmission Date: 20230722
  Serious: Yes (Other)
  Sender: FDA-Public Use
  Company Number: None

PATIENT
  Age: 71 Year
  Sex: Female
  Weight: 56.25 kg

DRUGS (12)
  1. DEXTROAMPHET SACCHARAT, AMPHET ASPARTATE, DEXTROAMPHET SULFATE AND AMP [Suspect]
     Active Substance: AMPHETAMINE ASPARTATE\AMPHETAMINE ASPARTATE MONOHYDRATE\AMPHETAMINE SULFATE\DEXTROAMPHETAMINE SACCHA
     Indication: Attention deficit hyperactivity disorder
     Route: 048
     Dates: start: 20230209, end: 20230213
  2. METFORMIN [Concomitant]
     Active Substance: METFORMIN HYDROCHLORIDE
  3. ATORVASTATIN [Concomitant]
     Active Substance: ATORVASTATIN
  4. ESTRADIOL [Concomitant]
     Active Substance: ESTRADIOL
  5. Methyl [Concomitant]
  6. VITAMIN B12 [Concomitant]
     Active Substance: CYANOCOBALAMIN
  7. FOLATE SODIUM [Concomitant]
     Active Substance: FOLATE SODIUM
  8. VITAMIN C [Concomitant]
     Active Substance: ASCORBIC ACID
  9. VITAMIN D3 [Concomitant]
     Active Substance: CHOLECALCIFEROL
  10. COENZYME Q10 [Concomitant]
     Active Substance: DIETARY SUPPLEMENT\UBIDECARENONE
  11. ZINC [Concomitant]
     Active Substance: ZINC
  12. Astralagus [Concomitant]

REACTIONS (5)
  - Drug ineffective [None]
  - Product supply issue [None]
  - Therapy interrupted [None]
  - Disturbance in attention [None]
  - Distractibility [None]

NARRATIVE: CASE EVENT DATE: 20230209
